FAERS Safety Report 17911751 (Version 3)
Quarter: 2020Q2

REPORT INFORMATION
  Report Type: Report from Study
  Country: KR (occurrence: KR)
  Receive Date: 20200618
  Receipt Date: 20200625
  Transmission Date: 20200714
  Serious: Yes (Hospitalization)
  Sender: FDA-Public Use
  Company Number: KR-PFIZER INC-2020234848

PATIENT
  Age: 66 Year
  Sex: Male
  Weight: 84 kg

DRUGS (14)
  1. PACLITAXEL. [Suspect]
     Active Substance: PACLITAXEL
     Indication: ANGIOSARCOMA
     Dosage: UNK
     Route: 042
     Dates: start: 20200323, end: 20200601
  2. ELIQUIS [Concomitant]
     Active Substance: APIXABAN
     Indication: ATRIAL FIBRILLATION
  3. URSA [Concomitant]
     Active Substance: URSODIOL
     Indication: HEPATIC FUNCTION ABNORMAL
  4. EBASTEL [Concomitant]
     Active Substance: EBASTINE
     Indication: RASH MACULO-PAPULAR
     Dosage: 10 MG, 1X/DAY
     Route: 048
     Dates: start: 20200420, end: 20200608
  5. TOPISOL MILK LOTION [Concomitant]
     Indication: RASH MACULO-PAPULAR
     Dosage: 80 G, 1X/DAY (RUB ONCE A DAY)
     Route: 061
     Dates: start: 20200414, end: 20200608
  6. AVELUMAB [Suspect]
     Active Substance: AVELUMAB
     Dosage: 840 MG
     Route: 042
     Dates: start: 20200525, end: 20200525
  7. ELIQUIS [Concomitant]
     Active Substance: APIXABAN
     Indication: BRADYCARDIA
     Dosage: 5 MG, 2X/DAY
     Route: 048
     Dates: start: 20200316
  8. AVELUMAB [Suspect]
     Active Substance: AVELUMAB
     Dosage: 840 MG
     Route: 042
     Dates: start: 20200612
  9. KANARB [Concomitant]
     Indication: HYPERTENSION
     Dosage: 60 MG, 1X/DAY
     Route: 048
     Dates: start: 20200420
  10. AVELUMAB [Suspect]
     Active Substance: AVELUMAB
     Indication: ANGIOSARCOMA
     Dosage: 840 MG
     Route: 042
     Dates: start: 20200323
  11. NAXOZOL [Concomitant]
     Indication: ABDOMINAL PAIN
     Dosage: 20 MG, 2X/DAY
     Route: 048
     Dates: start: 20200420, end: 20200608
  12. URSA [Concomitant]
     Active Substance: URSODIOL
     Indication: HEPATIC FUNCTION ABNORMAL
     Dosage: 200 MG (1 IN 0.3 DAY)
     Route: 048
     Dates: start: 20200317
  13. TRIDOL [Concomitant]
     Active Substance: TRAMADOL HYDROCHLORIDE
     Indication: ARTHRALGIA
     Dosage: 50 MG, 2X/DAY
     Route: 048
     Dates: start: 20200420, end: 20200608
  14. SYNTHYROXINE [Concomitant]
     Active Substance: LEVOTHYROXINE SODIUM
     Indication: HYPOTHYROIDISM
     Dosage: 0.05 MG, 1X/DAY
     Dates: start: 20200608, end: 20200610

REACTIONS (1)
  - Mucosal infection [Recovered/Resolved]

NARRATIVE: CASE EVENT DATE: 20200608
